FAERS Safety Report 8475179-5 (Version None)
Quarter: 2012Q2

REPORT INFORMATION
  Report Type: 
  Country: None (occurrence: None)
  Receive Date: 20120628
  Receipt Date: 20120622
  Transmission Date: 20120825
  Serious: Yes (Other)
  Sender: FDA-Public Use
  Company Number: US-PFIZER INC-2012121206

PATIENT
  Sex: Male

DRUGS (8)
  1. FUROSEMIDE [Concomitant]
     Dosage: 40 MG, 1X/DAY
  2. LOSARTAN [Concomitant]
     Dosage: 12.5 MG, 1X/DAY
  3. SPIRONOLACTONE [Concomitant]
     Dosage: 12.5 MG,1XDAY
  4. LEVOXYL [Concomitant]
     Dosage: 0.025 MG, 1X/DAY
  5. REVATIO [Suspect]
     Indication: PULMONARY HYPERTENSION
     Dosage: 20 MG, 1X/DAY
     Route: 048
     Dates: start: 20120511, end: 20120512
  6. REVATIO [Suspect]
     Indication: CARDIAC FAILURE CONGESTIVE
  7. AMIODARONE [Concomitant]
     Dosage: 200 MG, 1X/DAY
  8. WARFARIN [Concomitant]

REACTIONS (4)
  - DYSPNOEA [None]
  - PALPITATIONS [None]
  - HEADACHE [None]
  - URINE OUTPUT DECREASED [None]
